FAERS Safety Report 16843918 (Version 1)
Quarter: 2019Q3

REPORT INFORMATION
  Report Type: Spontaneous
  Country: FR (occurrence: FR)
  Receive Date: 20190924
  Receipt Date: 20190924
  Transmission Date: 20191005
  Serious: Yes (Hospitalization, Other)
  Sender: FDA-Public Use
  Company Number: FR-PFIZER INC-2019410693

PATIENT
  Age: 74 Year
  Sex: Female
  Weight: 102 kg

DRUGS (11)
  1. BISOPROLOL FUMARATE. [Suspect]
     Active Substance: BISOPROLOL FUMARATE
     Indication: HYPERTENSION
     Dosage: UNK
     Route: 048
     Dates: end: 20190810
  2. LOVENOX [Suspect]
     Active Substance: ENOXAPARIN SODIUM
     Indication: THROMBOSIS PROPHYLAXIS
     Dosage: 5000 INTERNATIONAL UNIT, Q12H
     Route: 058
     Dates: start: 20190611, end: 20190808
  3. METFORMIN HCL [Suspect]
     Active Substance: METFORMIN HYDROCHLORIDE
     Indication: DIABETES MELLITUS
     Dosage: 2550 MILLIGRAM, QD
     Route: 048
     Dates: end: 201908
  4. LEVOTHYROX [Suspect]
     Active Substance: LEVOTHYROXINE
     Indication: HYPOTHYROIDISM
     Dosage: UNK UNK, QD
     Route: 048
  5. FUNGIZONE [Suspect]
     Active Substance: AMPHOTERICIN B
     Dosage: UNK
     Route: 048
     Dates: end: 201908
  6. CEFTAZIDIME. [Suspect]
     Active Substance: CEFTAZIDIME
     Indication: ARTHRITIS INFECTIVE
     Dosage: 6 GRAM, QD
     Route: 042
     Dates: start: 20190730, end: 20190809
  7. SPECIAFOLDINE [Suspect]
     Active Substance: FOLIC ACID
     Dosage: 10 MILLIGRAM, QD
     Route: 048
     Dates: end: 20190822
  8. FUMAFER [Suspect]
     Active Substance: FERROUS FUMARATE
     Indication: ANAEMIA
     Dosage: 132 MILLIGRAM, QD
     Route: 048
     Dates: end: 201908
  9. ULTRA LEVURE [Suspect]
     Active Substance: SACCHAROMYCES CEREVISIAE
     Dosage: 200 MILLIGRAM, QD
     Route: 048
     Dates: end: 201908
  10. PANTOPRAZOLE [Suspect]
     Active Substance: PANTOPRAZOLE
     Dosage: UNK UNK, QD
     Route: 048
  11. APROVEL [Suspect]
     Active Substance: IRBESARTAN
     Indication: HYPERTENSION
     Dosage: 75 MILLIGRAM, QD
     Route: 048
     Dates: end: 201908

REACTIONS (1)
  - Acute kidney injury [Not Recovered/Not Resolved]

NARRATIVE: CASE EVENT DATE: 20190807
